FAERS Safety Report 24251214 (Version 2)
Quarter: 2024Q3

REPORT INFORMATION
  Report Type: Spontaneous
  Country: AR (occurrence: AR)
  Receive Date: 20240826
  Receipt Date: 20240904
  Transmission Date: 20241017
  Serious: Yes (Death, Hospitalization, Other)
  Sender: GILEAD
  Company Number: AR-GLAXOSMITHKLINE-AR2024AMR082021

PATIENT
  Age: 74 Year
  Sex: Male

DRUGS (4)
  1. AMBRISENTAN [Suspect]
     Active Substance: AMBRISENTAN
     Indication: Pulmonary hypertension
     Dosage: 10 MG
     Route: 065
  2. AMBRISENTAN [Suspect]
     Active Substance: AMBRISENTAN
     Dosage: 5 MG
     Route: 065
     Dates: start: 200412
  3. LERCANIDIPINE [Concomitant]
     Active Substance: LERCANIDIPINE
     Indication: Pulmonary hypertension
     Dosage: UNK
     Route: 065
     Dates: start: 200412
  4. TADALAFIL [Concomitant]
     Active Substance: TADALAFIL
     Indication: Pulmonary hypertension
     Dosage: 20 MG

REACTIONS (3)
  - Death [Fatal]
  - Oxygen saturation decreased [Unknown]
  - Pulmonary hypertension [Unknown]

NARRATIVE: CASE EVENT DATE: 20240726
